FAERS Safety Report 8323136-1 (Version None)
Quarter: 2012Q2

REPORT INFORMATION
  Report Type: 
  Country: None (occurrence: None)
  Receive Date: 20120430
  Receipt Date: 20120420
  Transmission Date: 20120825
  Serious: Yes (Other)
  Sender: FDA-Public Use
  Company Number: PHHY2012JP032576

PATIENT
  Sex: Female

DRUGS (1)
  1. CYCLOSPORINE [Suspect]
     Indication: ALLOGENIC BONE MARROW TRANSPLANTATION THERAPY
     Dosage: UNK UKN, UNK

REACTIONS (4)
  - GRAND MAL CONVULSION [None]
  - INTRACRANIAL PRESSURE INCREASED [None]
  - VISUAL IMPAIRMENT [None]
  - CEREBROVASCULAR SPASM [None]
